FAERS Safety Report 25519249 (Version 1)
Quarter: 2025Q3

REPORT INFORMATION
  Report Type: Spontaneous
  Country: GB (occurrence: GB)
  Receive Date: 20250704
  Receipt Date: 20250704
  Transmission Date: 20251020
  Serious: Yes (Life-Threatening, Hospitalization, Disabling, Other)
  Sender: TORRENT PHARMA INC.
  Company Number: None

PATIENT
  Age: 67 Year
  Sex: Male
  Weight: 95 kg

DRUGS (2)
  1. DULOXETINE [Suspect]
     Active Substance: DULOXETINE
     Indication: Neuralgia
     Dosage: 60MG TWICE A DAY AND 2 AMITRIPTYLINE ONCE A DAY
     Route: 065
     Dates: end: 20250614
  2. AMITRIPTYLINE [Suspect]
     Active Substance: AMITRIPTYLINE
     Indication: Neuralgia
     Dosage: 2 TABLETS AT NIGHT
     Route: 065

REACTIONS (8)
  - Blood pressure increased [Recovering/Resolving]
  - Product prescribing issue [Unknown]
  - Serotonin syndrome [Unknown]
  - Pyrexia [Unknown]
  - Hyperhidrosis [Unknown]
  - Hallucination [Unknown]
  - Headache [Unknown]
  - Loss of personal independence in daily activities [Unknown]

NARRATIVE: CASE EVENT DATE: 20250613
